FAERS Safety Report 15648154 (Version 1)
Quarter: 2018Q4

REPORT INFORMATION
  Report Type: Spontaneous
  Country: FR (occurrence: FR)
  Receive Date: 20181122
  Receipt Date: 20181122
  Transmission Date: 20190205
  Serious: Yes (Hospitalization, Other)
  Sender: FDA-Public Use
  Company Number: FR-PROVELL PHARMACEUTICALS-2059203

PATIENT
  Age: 73 Year
  Sex: Female

DRUGS (1)
  1. EUTHYROX [Suspect]
     Active Substance: LEVOTHYROXINE SODIUM
     Indication: HYPOTHYROIDISM
     Dates: start: 20170404

REACTIONS (14)
  - Gastroenteritis [Recovering/Resolving]
  - Hypokalaemia [Recovering/Resolving]
  - Weight decreased [Recovering/Resolving]
  - Arthralgia [Recovering/Resolving]
  - Dyspnoea [Recovering/Resolving]
  - Asthenia [Recovering/Resolving]
  - Pyrexia [Recovering/Resolving]
  - Fatigue [Recovering/Resolving]
  - Angina pectoris [Recovering/Resolving]
  - Dizziness [Recovering/Resolving]
  - Pallor [Recovering/Resolving]
  - Dehydration [Recovering/Resolving]
  - Feeling abnormal [Recovering/Resolving]
  - Phobia of driving [Recovering/Resolving]

NARRATIVE: CASE EVENT DATE: 2017
